FAERS Safety Report 12808125 (Version 2)
Quarter: 2016Q4

REPORT INFORMATION
  Report Type: Spontaneous
  Country: US (occurrence: US)
  Receive Date: 20161004
  Receipt Date: 20161111
  Transmission Date: 20170207
  Serious: No
  Sender: FDA-Public Use
  Company Number: US-PFIZER INC-2016458724

PATIENT
  Age: 45 Year
  Sex: Female

DRUGS (5)
  1. THORAZINE [Suspect]
     Active Substance: CHLORPROMAZINE
  2. LOVENOX [Suspect]
     Active Substance: ENOXAPARIN SODIUM
  3. COUMADIN [Suspect]
     Active Substance: WARFARIN SODIUM
  4. HEPARIN SODIUM. [Suspect]
     Active Substance: HEPARIN SODIUM
     Dosage: UNK
  5. LEPIRUDIN [Suspect]
     Active Substance: LEPIRUDIN

REACTIONS (1)
  - Drug hypersensitivity [Unknown]
